FAERS Safety Report 16902989 (Version 1)
Quarter: 2019Q4

REPORT INFORMATION
  Report Type: Spontaneous
  Country: GB (occurrence: GB)
  Receive Date: 20190816
  Receipt Date: 20190816
  Transmission Date: 20200122
  Serious: No
  Sender: FDA-Public Use
  Company Number: None

PATIENT
  Sex: Male

DRUGS (2)
  1. HISMILE TEETH WHITENING KIT (SODIUM BICARBONATE\SODIUM CHLORITE) [Suspect]
     Active Substance: SODIUM BICARBONATE\SODIUM CHLORITE
     Indication: TOOTH DISCOLOURATION
  2. TEETH WHITENING PEN (SODIUM BICARBONATE\SODIUM CHLORITE) [Suspect]
     Active Substance: SODIUM BICARBONATE\SODIUM CHLORITE

REACTIONS (1)
  - Product formulation issue [None]

NARRATIVE: CASE EVENT DATE: 20190812
